FAERS Safety Report 20465299 (Version 2)
Quarter: 2022Q1

REPORT INFORMATION
  Report Type: Spontaneous
  Country: FR (occurrence: FR)
  Receive Date: 20220211
  Receipt Date: 20220310
  Transmission Date: 20220423
  Serious: Yes (Hospitalization, Other)
  Sender: FDA-Public Use
  Company Number: FR-BIOGARAN-B22000141

PATIENT
  Age: 82 Year
  Sex: Female

DRUGS (10)
  1. CETIRIZINE HYDROCHLORIDE [Suspect]
     Active Substance: CETIRIZINE HYDROCHLORIDE
     Indication: Product used for unknown indication
     Dosage: ADDITIONAL INFO: MISUSE,OVERDOSE
     Route: 048
  2. VENLAFAXINE [Suspect]
     Active Substance: VENLAFAXINE HYDROCHLORIDE
     Indication: Product used for unknown indication
     Dosage: ADDITIONAL INFO: OVERDOSE,MISUSE
     Route: 048
  3. ACETAMINOPHEN [Suspect]
     Active Substance: ACETAMINOPHEN
     Indication: Product used for unknown indication
     Dosage: ADDITIONAL INFO: OVERDOSE,MISUSE
     Route: 048
  4. ZOPICLONE [Suspect]
     Active Substance: ZOPICLONE
     Indication: Product used for unknown indication
     Dosage: ADDITIONAL INFO: MISUSE,OVERDOSE
     Route: 048
  5. DABIGATRAN ETEXILATE MESYLATE [Suspect]
     Active Substance: DABIGATRAN ETEXILATE MESYLATE
     Indication: Atrial fibrillation
     Dosage: ADDITIONAL INFO: OVERDOSE,MISUSE,MISUSE,OVERDOSE
     Route: 048
  6. DABIGATRAN ETEXILATE MESYLATE [Suspect]
     Active Substance: DABIGATRAN ETEXILATE MESYLATE
     Indication: Product used for unknown indication
  7. MONTELUKAST [Suspect]
     Active Substance: MONTELUKAST SODIUM
     Indication: Product used for unknown indication
     Dosage: ADDITIONAL INFO: MISUSE,OVERDOSE
     Route: 048
  8. QUETIAPINE [Suspect]
     Active Substance: QUETIAPINE
     Indication: Product used for unknown indication
     Dosage: ADDITIONAL INFO: OVERDOSE,MISUSE
     Route: 048
  9. LORAZEPAM [Suspect]
     Active Substance: LORAZEPAM
     Indication: Product used for unknown indication
     Dosage: ADDITIONAL INFO: OVERDOSE,MISUSE,MISUSE,OVERDOSE
     Route: 048
  10. LORAZEPAM [Suspect]
     Active Substance: LORAZEPAM
     Indication: Atrial fibrillation
     Dosage: ADDITIONAL INFO: OVERDOSE,MISUSE,MISUSE,OVERDOSE
     Route: 048

REACTIONS (5)
  - Intentional overdose [Unknown]
  - Intentional product misuse [Unknown]
  - Somnolence [Unknown]
  - Renal failure [Unknown]
  - Suicide attempt [Unknown]
